FAERS Safety Report 21649135 (Version 1)
Quarter: 2022Q4

REPORT INFORMATION
  Report Type: Spontaneous
  Country: US (occurrence: None)
  Receive Date: 20221123
  Receipt Date: 20221123
  Transmission Date: 20230113
  Serious: No
  Sender: FDA-Public Use
  Company Number: None

PATIENT
  Age: 18 Year
  Sex: Female

DRUGS (1)
  1. HUMIRA [Suspect]
     Active Substance: ADALIMUMAB
     Indication: Hidradenitis
     Dosage: INJECT 80MG   SUBCUTANEOUSLY EVERY 2 WEEKS AS DIRECTED INJECT   ?
     Route: 058
     Dates: start: 202210

REACTIONS (2)
  - Urinary tract infection [None]
  - Therapy interrupted [None]
